FAERS Safety Report 5107978-1 (Version None)
Quarter: 2006Q3

REPORT INFORMATION
  Report Type: 
  Country: None (occurrence: None)
  Receive Date: 20060914
  Receipt Date: 20050905
  Transmission Date: 20061208
  Serious: Yes (Hospitalization)
  Sender: FDA-Public Use
  Company Number: 06-ADE-SU-0017-ACT

PATIENT
  Age: 7 Month
  Sex: Female

DRUGS (2)
  1. CORTICOTROPIN [Suspect]
     Indication: INFANTILE SPASMS
     Dosage: 150 U/M2 PER DAY IM
     Route: 030
  2. COPAXONE [Concomitant]

REACTIONS (2)
  - DISEASE RECURRENCE [None]
  - ENCEPHALITIS HERPES [None]
